FAERS Safety Report 20078008 (Version 1)
Quarter: 2021Q4

REPORT INFORMATION
  Report Type: Spontaneous
  Country: NL (occurrence: None)
  Receive Date: 20211117
  Receipt Date: 20211117
  Transmission Date: 20220303
  Serious: Yes (Other)
  Sender: FDA-Public Use
  Company Number: NL-ROCHE-2955147

PATIENT
  Sex: Female

DRUGS (1)
  1. CELLCEPT [Suspect]
     Active Substance: MYCOPHENOLATE MOFETIL\MYCOPHENOLATE MOFETIL HYDROCHLORIDE
     Indication: Systemic lupus erythematosus
     Dosage: 2 1/2 500 MG TABLET
     Route: 048

REACTIONS (5)
  - Gastrointestinal disorder [Unknown]
  - Decreased appetite [Unknown]
  - Wrong technique in product usage process [Unknown]
  - Wrong dose [Unknown]
  - Off label use [Unknown]
